FAERS Safety Report 23879991 (Version 2)
Quarter: 2024Q2

REPORT INFORMATION
  Report Type: Report from Study
  Country: IT (occurrence: IT)
  Receive Date: 20240521
  Receipt Date: 20240529
  Transmission Date: 20240716
  Serious: Yes (Hospitalization)
  Sender: FDA-Public Use
  Company Number: None

PATIENT
  Age: 51 Year
  Sex: Male
  Weight: 103 kg

DRUGS (1)
  1. RINVOQ [Suspect]
     Active Substance: UPADACITINIB
     Indication: Rheumatoid arthritis
     Dosage: 15 MG/DIE X OS
     Route: 048
     Dates: start: 202111, end: 202311

REACTIONS (4)
  - Arteriosclerosis coronary artery [Recovered/Resolved]
  - Pericardial effusion [Recovered/Resolved]
  - Chest pain [Recovered/Resolved]
  - Coronary artery aneurysm [Recovered/Resolved]

NARRATIVE: CASE EVENT DATE: 20230801
